FAERS Safety Report 4443191-9 (Version None)
Quarter: 2004Q3

REPORT INFORMATION
  Report Type: 
  Country: None (occurrence: None)
  Receive Date: 20040908
  Receipt Date: 20040827
  Transmission Date: 20050211
  Serious: Yes (Hospitalization, Other)
  Sender: FDA-Public Use
  Company Number: NL-JNJFOC-20030802863

PATIENT
  Sex: Female
  Weight: 48 kg

DRUGS (5)
  1. RISPERDAL [Suspect]
     Route: 049
  2. RISPERDAL [Suspect]
     Route: 049
  3. OXAZEPAM [Concomitant]
  4. LIBRIUM [Concomitant]
     Route: 049
  5. THYRAX [Concomitant]
     Route: 049

REACTIONS (25)
  - ABNORMAL SENSATION IN EYE [None]
  - ANTIPSYCHOTIC DRUG LEVEL ABOVE THERAPEUTIC [None]
  - ARRHYTHMIA [None]
  - DIZZINESS [None]
  - DRUG INTOLERANCE [None]
  - DRY MOUTH [None]
  - DYSKINESIA [None]
  - EMOTIONAL DISORDER [None]
  - EXTRAPYRAMIDAL DISORDER [None]
  - FACE OEDEMA [None]
  - FATIGUE [None]
  - GENERALISED OEDEMA [None]
  - HAEMORRHAGE [None]
  - HEADACHE [None]
  - HYPOTHYROIDISM [None]
  - INFLUENZA [None]
  - KERATOCONJUNCTIVITIS SICCA [None]
  - LOOSE STOOLS [None]
  - MASKED FACIES [None]
  - MELAENA [None]
  - MUSCULOSKELETAL STIFFNESS [None]
  - STRABISMUS [None]
  - THERAPY NON-RESPONDER [None]
  - URINARY INCONTINENCE [None]
  - VISION BLURRED [None]
